FAERS Safety Report 10516836 (Version 2)
Quarter: 2014Q4

REPORT INFORMATION
  Report Type: Spontaneous
  Country: US (occurrence: US)
  Receive Date: 20141014
  Receipt Date: 20141201
  Transmission Date: 20150528
  Serious: Yes (Hospitalization)
  Sender: FDA-Public Use
  Company Number: US-BAYER-2014-151304

PATIENT
  Age: 23 Year
  Sex: Female
  Weight: 58.5 kg

DRUGS (7)
  1. ATARAX [Concomitant]
     Active Substance: HYDROXYZINE\HYDROXYZINE HYDROCHLORIDE
  2. MIRENA [Suspect]
     Active Substance: LEVONORGESTREL
     Indication: CONTRACEPTION
     Dosage: 20 MCG/24HR, CONT
     Route: 015
     Dates: start: 20111219, end: 20131001
  3. PREDNISONE. [Concomitant]
     Active Substance: PREDNISONE
  4. LORTAB [HYDROCODONE BITARTRATE,PARACETAMOL] [Concomitant]
  5. ALBUTEROL SULFATE. [Concomitant]
     Active Substance: ALBUTEROL SULFATE
  6. KEFLEX [Concomitant]
     Active Substance: CEPHALEXIN
  7. DOXICYCLIN [Concomitant]
     Active Substance: DOXYCYCLINE

REACTIONS (4)
  - Embedded device [None]
  - Injury [None]
  - Pain [None]
  - Emotional distress [None]

NARRATIVE: CASE EVENT DATE: 20131001
